FAERS Safety Report 5141858-0 (Version None)
Quarter: 2006Q4

REPORT INFORMATION
  Report Type: 
  Country: None (occurrence: None)
  Receive Date: 20061026
  Receipt Date: 20061018
  Transmission Date: 20070319
  Serious: Yes (Other)
  Sender: FDA-Public Use
  Company Number: GBWYE282719OCT06

PATIENT
  Sex: 0

DRUGS (1)
  1. EFFEXOR [Suspect]

REACTIONS (2)
  - AGGRESSION [None]
  - PHYSICAL ASSAULT [None]
